FAERS Safety Report 9419846 (Version 1)
Quarter: 2013Q3

REPORT INFORMATION
  Report Type: Spontaneous
  Country: FI (occurrence: FI)
  Receive Date: 20130725
  Receipt Date: 20130725
  Transmission Date: 20140515
  Serious: Yes (Other)
  Sender: FDA-Public Use
  Company Number: FI-CELGENEUS-055-50794-13071717

PATIENT
  Sex: 0

DRUGS (7)
  1. VIDAZA [Suspect]
     Indication: MYELODYSPLASTIC SYNDROME
     Route: 065
  2. VIDAZA [Suspect]
     Indication: ACUTE MYELOID LEUKAEMIA
  3. DONOR LYMPHOCYTE INFUSION [Concomitant]
     Indication: PRODUCT USED FOR UNKNOWN INDICATION
     Route: 041
  4. ANTI-THROMBOCYTE GLOBULIN [Concomitant]
     Indication: IMMUNOSUPPRESSION
     Route: 065
  5. METHOTREXATE [Concomitant]
     Indication: IMMUNOSUPPRESSION
     Route: 065
  6. CALCINEURIN INHIBITOR [Concomitant]
     Indication: IMMUNOSUPPRESSION
     Route: 065
  7. EVEROLIMUS [Concomitant]
     Indication: IMMUNOSUPPRESSION
     Route: 065

REACTIONS (4)
  - Acute graft versus host disease [Recovered/Resolved]
  - Graft versus host disease [Unknown]
  - Immunosuppression [Not Recovered/Not Resolved]
  - Disease recurrence [Unknown]
